FAERS Safety Report 18662598 (Version 1)
Quarter: 2020Q4

REPORT INFORMATION
  Report Type: Spontaneous
  Country: IE (occurrence: IE)
  Receive Date: 20201224
  Receipt Date: 20201224
  Transmission Date: 20210114
  Serious: Yes (Other)
  Sender: FDA-Public Use
  Company Number: IE-AMGEN-IRLSP2020205636

PATIENT

DRUGS (13)
  1. SEVELAMER CARBONATE. [Concomitant]
     Active Substance: SEVELAMER CARBONATE
  2. LANTHANUM CARBONATE. [Concomitant]
     Active Substance: LANTHANUM CARBONATE
  3. CINACALCET HCL [Suspect]
     Active Substance: CINACALCET HYDROCHLORIDE
     Indication: PRODUCT USED FOR UNKNOWN INDICATION
     Dosage: UNK
     Route: 065
  4. SEVELAMER HYDROCHLORIDE. [Concomitant]
     Active Substance: SEVELAMER HYDROCHLORIDE
  5. CALCIUM ACETATE. [Concomitant]
     Active Substance: CALCIUM ACETATE
  6. SUCROFERRIC OXYHYDROXIDE [Concomitant]
     Active Substance: SUCROFERRIC OXYHYDROXIDE
  7. VITAMIN D [COLECALCIFEROL] [Concomitant]
     Active Substance: CHOLECALCIFEROL
  8. CALCIUM CARBONATE. [Concomitant]
     Active Substance: CALCIUM CARBONATE
  9. CALCITRIOL. [Concomitant]
     Active Substance: CALCITRIOL
  10. CALCIUM ACETATE;MAGNESIUM CARBONATE [Concomitant]
  11. PHOSPHORUS [Concomitant]
     Active Substance: PHOSPHORUS
     Dosage: 1000 MILLIGRAM, QD
  12. ALFACALCIDOL [Concomitant]
     Active Substance: ALFACALCIDOL
  13. PARICALCITOL. [Concomitant]
     Active Substance: PARICALCITOL

REACTIONS (2)
  - Hyperkalaemia [Unknown]
  - Hip fracture [Unknown]
